FAERS Safety Report 6207745 (Version 2)
Quarter: 2013Q2

REPORT INFORMATION
  Report Type: Spontaneous
  Country: IT (occurrence: IT)
  Receive Date: 20070104
  Receipt Date: 20130410
  Transmission Date: 20140414
  Serious: Yes (Hospitalization)
  Sender: FDA-Public Use
  Company Number: IT-JNJFOC-20061205645

PATIENT
  Age: 35 Year
  Sex: Female

DRUGS (5)
  1. IBUPROFEN [Suspect]
     Indication: HEADACHE
     Route: 065
  2. CONTRAMAL [Suspect]
     Indication: HEADACHE
     Route: 048
  3. CONTRAMAL [Suspect]
     Indication: HEADACHE
     Route: 048
  4. NIMESULIDE [Suspect]
     Indication: HEADACHE
     Route: 048
  5. DICLOFENAC [Suspect]
     Indication: HEADACHE
     Route: 065

REACTIONS (3)
  - Drug abuse [Recovered/Resolved]
  - Presyncope [Recovered/Resolved]
  - Overdose [Unknown]
